FAERS Safety Report 15234943 (Version 2)
Quarter: 2019Q3

REPORT INFORMATION
  Report Type: Spontaneous
  Country: US (occurrence: US)
  Receive Date: 20180803
  Receipt Date: 20190805
  Transmission Date: 20191004
  Serious: Yes (Other)
  Sender: FDA-Public Use
  Company Number: US-ACCORD-065249

PATIENT
  Age: 65 Year
  Sex: Female
  Weight: 75.75 kg

DRUGS (16)
  1. CODEINE/PARACETAMOL [Concomitant]
     Indication: HYPERSENSITIVITY
     Dosage: STRENGTH: 10 MG
     Route: 048
  2. LEXAPRO [Concomitant]
     Active Substance: ESCITALOPRAM OXALATE
     Dosage: STRENGTH: 20 MG
     Route: 048
  3. ZOCOR [Concomitant]
     Active Substance: SIMVASTATIN
     Dosage: STRENGTH: 20 MG
     Route: 048
  4. DEXAMETHASONE. [Concomitant]
     Active Substance: DEXAMETHASONE
     Dosage: 20 MG (OF 4 MG/ML) INTRAVENOUS SHORT OVER 15 MINUTES FOR I DAY IN NS 50 ML
     Route: 042
  5. PROMETHAZINE [Concomitant]
     Active Substance: PROMETHAZINE HYDROCHLORIDE
     Dosage: STRENGTH: 12.5 MG
     Route: 048
  6. NEOSAR [Concomitant]
     Active Substance: CYCLOPHOSPHAMIDE
  7. ABILIFY [Concomitant]
     Active Substance: ARIPIPRAZOLE
     Route: 048
  8. MELOXICAM. [Concomitant]
     Active Substance: MELOXICAM
     Dosage: STRENGTH: 15 MG
     Route: 048
  9. ONDANSETRON [Concomitant]
     Active Substance: ONDANSETRON
     Dosage: STRENGTH: 4 MG
     Route: 048
  10. FLONASE [Concomitant]
     Active Substance: FLUTICASONE PROPIONATE
     Dosage: 1 SPRAY(S) SUSPENSION NASAL DAILY?STRENGTH: 50 MCG
  11. PALONOSETRON. [Concomitant]
     Active Substance: PALONOSETRON HYDROCHLORIDE
     Dosage: 0.25 MG/5ML INTRAVENOUS DAILY SHORT OVER 15 MINUTES FOR 1 DAY IN?NS 50 ML, RATE OF 220 ML/HR
     Route: 042
  12. DECETAXEL ACCORD [Suspect]
     Active Substance: DOCETAXEL
     Indication: BREAST CANCER
     Dosage: NUMBER OF CYCLES: 04
     Route: 042
     Dates: start: 20150702, end: 20150902
  13. HYDROCHLOROTHIAZIDE. [Concomitant]
     Active Substance: HYDROCHLOROTHIAZIDE
     Dosage: STRENGTH: 12.5 MG
     Route: 048
     Dates: start: 1995, end: 2015
  14. TRAVOPROST. [Concomitant]
     Active Substance: TRAVOPROST
     Dates: start: 1959
  15. PEGFILGRASTIM [Concomitant]
     Active Substance: PEGFILGRASTIM
     Dosage: DAILY FOR 1 DAY
     Route: 058
  16. ESTROGEN NOS [Concomitant]
     Active Substance: ESTROGENS
     Dates: start: 20000101, end: 20151231

REACTIONS (1)
  - Alopecia [Not Recovered/Not Resolved]

NARRATIVE: CASE EVENT DATE: 20150702
